FAERS Safety Report 8489930-1 (Version None)
Quarter: 2012Q3

REPORT INFORMATION
  Report Type: 
  Country: None (occurrence: None)
  Receive Date: 20120705
  Receipt Date: 20120702
  Transmission Date: 20120928
  Serious: Yes (Other)
  Sender: FDA-Public Use
  Company Number: US-PFIZER INC-2012158742

PATIENT
  Sex: Female

DRUGS (2)
  1. LYRICA [Suspect]
     Dosage: 150 MG, 3X/DAY
     Dates: start: 20080101
  2. LYRICA [Suspect]
     Dosage: UNK

REACTIONS (5)
  - TREMOR [None]
  - THINKING ABNORMAL [None]
  - MEMORY IMPAIRMENT [None]
  - COGNITIVE DISORDER [None]
  - NEURALGIA [None]
